FAERS Safety Report 23349651 (Version 1)
Quarter: 2023Q4

REPORT INFORMATION
  Report Type: Spontaneous
  Country: US (occurrence: US)
  Receive Date: 20231229
  Receipt Date: 20231229
  Transmission Date: 20240110
  Serious: No
  Sender: FDA-Public Use
  Company Number: US-TAKEDA-2023TUS124697

PATIENT
  Age: 65 Year
  Sex: Male

DRUGS (1)
  1. TRINTELLIX [Suspect]
     Active Substance: VORTIOXETINE HYDROBROMIDE
     Indication: Major depression
     Dosage: UNK
     Route: 065

REACTIONS (5)
  - Depressed mood [Unknown]
  - Anhedonia [Unknown]
  - Insomnia [Unknown]
  - Logorrhoea [Unknown]
  - Feeling abnormal [Unknown]
